FAERS Safety Report 14046721 (Version 1)
Quarter: 2017Q4

REPORT INFORMATION
  Report Type: Spontaneous
  Country: US (occurrence: US)
  Receive Date: 20171005
  Receipt Date: 20171005
  Transmission Date: 20180321
  Serious: No
  Sender: FDA-Public Use
  Company Number: US-ELI_LILLY_AND_COMPANY-US201710000311

PATIENT
  Sex: Male

DRUGS (1)
  1. FORTEO [Suspect]
     Active Substance: TERIPARATIDE
     Indication: SPINAL FUSION SURGERY
     Dosage: 20 UG, UNKNOWN
     Route: 058
     Dates: start: 20170616

REACTIONS (4)
  - Pain in extremity [Recovered/Resolved]
  - Off label use [Unknown]
  - Back pain [Recovering/Resolving]
  - Blood calcium increased [Unknown]
